FAERS Safety Report 12094621 (Version 1)
Quarter: 2016Q1

REPORT INFORMATION
  Report Type: Spontaneous
  Country: JP (occurrence: JP)
  Receive Date: 20160219
  Receipt Date: 20160219
  Transmission Date: 20160526
  Serious: Yes (Hospitalization)
  Sender: FDA-Public Use
  Company Number: JP-UNICHEM LABORATORIES LIMITED-UCM201602-000016

PATIENT
  Age: 75 Year
  Sex: Female

DRUGS (5)
  1. DIVALPROEX SODIUM. [Suspect]
     Active Substance: DIVALPROEX SODIUM
  2. DIVALPROEX SODIUM. [Suspect]
     Active Substance: DIVALPROEX SODIUM
  3. DIVALPROEX SODIUM. [Suspect]
     Active Substance: DIVALPROEX SODIUM
  4. PEROSPIRONE [Concomitant]
     Active Substance: PEROSPIRONE
  5. DONEPEZIL. [Concomitant]
     Active Substance: DONEPEZIL

REACTIONS (3)
  - Treatment noncompliance [Unknown]
  - Parkinsonism [Recovered/Resolved]
  - Cognitive disorder [Recovered/Resolved]
